FAERS Safety Report 14303538 (Version 1)
Quarter: 2017Q4

REPORT INFORMATION
  Report Type: Spontaneous
  Country: CA (occurrence: CA)
  Receive Date: 20171219
  Receipt Date: 20171219
  Transmission Date: 20180321
  Serious: Yes (Disabling)
  Sender: FDA-Public Use
  Company Number: CA-OTSUKA-2015_012414

PATIENT
  Sex: Male
  Weight: 58 kg

DRUGS (2)
  1. ABILIFY [Suspect]
     Active Substance: ARIPIPRAZOLE
     Indication: ANXIETY
     Dosage: UNK [HALF OF THE TABLET OF 5 MG]
     Route: 065
  2. ABILIFY [Suspect]
     Active Substance: ARIPIPRAZOLE
     Indication: DEPRESSION
     Dosage: 2.5 MG, UNK [HALF OF THE TABLET OF 5 MG]
     Route: 048
     Dates: start: 201405

REACTIONS (4)
  - Muscle contractions involuntary [Not Recovered/Not Resolved]
  - Muscle spasms [Not Recovered/Not Resolved]
  - Wrong technique in product usage process [Unknown]
  - Musculoskeletal stiffness [Not Recovered/Not Resolved]
